FAERS Safety Report 25025380 (Version 1)
Quarter: 2025Q1

REPORT INFORMATION
  Report Type: Spontaneous
  Country: US (occurrence: US)
  Receive Date: 20250228
  Receipt Date: 20250228
  Transmission Date: 20250408
  Serious: No
  Sender: MYLAN
  Company Number: US-MYLANLABS-2025M1015182

PATIENT
  Sex: Female

DRUGS (4)
  1. ERMEZA [Suspect]
     Active Substance: LEVOTHYROXINE SODIUM
     Indication: Product used for unknown indication
  2. ERMEZA [Suspect]
     Active Substance: LEVOTHYROXINE SODIUM
     Route: 065
  3. ERMEZA [Suspect]
     Active Substance: LEVOTHYROXINE SODIUM
     Route: 065
  4. ERMEZA [Suspect]
     Active Substance: LEVOTHYROXINE SODIUM

REACTIONS (2)
  - Migraine [Unknown]
  - Eye pain [Unknown]
